FAERS Safety Report 17019080 (Version 1)
Quarter: 2019Q4

REPORT INFORMATION
  Report Type: Spontaneous
  Country: US (occurrence: US)
  Receive Date: 20191112
  Receipt Date: 20191112
  Transmission Date: 20200122
  Serious: Yes (Other)
  Sender: FDA-Public Use
  Company Number: US-ROCHE-2459140

PATIENT
  Sex: Male

DRUGS (1)
  1. ESBRIET [Suspect]
     Active Substance: PIRFENIDONE
     Indication: PRODUCT USED FOR UNKNOWN INDICATION
     Dosage: ONGOING UNKNOWN
     Route: 065
     Dates: start: 201708

REACTIONS (5)
  - Thrombosis [Unknown]
  - Decreased appetite [Unknown]
  - Blood glucose fluctuation [Unknown]
  - Rhinorrhoea [Unknown]
  - Portal vein thrombosis [Unknown]
